FAERS Safety Report 9892432 (Version 2)
Quarter: 2014Q1

REPORT INFORMATION
  Report Type: Report from Study
  Country: ES (occurrence: ES)
  Receive Date: 20140212
  Receipt Date: 20140227
  Transmission Date: 20141002
  Serious: Yes (Hospitalization)
  Sender: FDA-Public Use
  Company Number: ES-009507513-1401ESP014546

PATIENT
  Age: 45 Year
  Sex: Male
  Weight: 83 kg

DRUGS (6)
  1. BLINDED EZETIMIBE (+) SIMVASTATIN [Suspect]
     Indication: ACUTE CORONARY SYNDROME
     Dosage: UNK
     Route: 048
     Dates: start: 20070518
  2. BLINDED THERAPY [Suspect]
     Indication: ACUTE CORONARY SYNDROME
     Dosage: UNK
     Route: 048
     Dates: start: 20070518
  3. COZAAR 50 MG [Concomitant]
     Dosage: TOTAL DAILY DOSE 50 (UNITS NOT SPECIFIED)
     Route: 048
     Dates: start: 20070518
  4. OMEPRAZOLE [Concomitant]
     Dosage: TOTAL DAILY DOSE 20 (UNITS NOT SPECIFIED)
     Route: 048
     Dates: start: 20070518
  5. EMCONCOR [Concomitant]
     Dosage: TOTAL DAILY DOSE 2.5 (UNITS NOT SPECIFIED)
     Route: 048
     Dates: start: 20070518
  6. ADIRO [Concomitant]
     Dosage: TOTAL DAILY DOSE 100 (UNITS NOT SPECIFIED)
     Dates: start: 20070518

REACTIONS (1)
  - Pneumonia [Recovered/Resolved]
